FAERS Safety Report 8809105 (Version 1)
Quarter: 2012Q4

REPORT INFORMATION
  Report Type: Spontaneous
  Country: US (occurrence: None)
  Receive Date: 20120921
  Receipt Date: 20120921
  Transmission Date: 20130627
  Serious: Yes (Other)
  Sender: FDA-Public Use
  Company Number: None

PATIENT
  Age: 36 Year
  Sex: Male

DRUGS (2)
  1. ABILIFY [Suspect]
  2. PAIN PILLS [Concomitant]

REACTIONS (5)
  - Pain [None]
  - Tremor [None]
  - Myalgia [None]
  - Alopecia [None]
  - Faecal incontinence [None]
